FAERS Safety Report 10235213 (Version 1)
Quarter: 2014Q2

REPORT INFORMATION
  Report Type: Spontaneous
  Country: US (occurrence: None)
  Receive Date: 20140612
  Receipt Date: 20140612
  Transmission Date: 20141212
  Serious: Yes (Hospitalization, Disabling)
  Sender: FDA-Public Use
  Company Number: None

PATIENT
  Age: 59 Year
  Sex: Female
  Weight: 136.08 kg

DRUGS (1)
  1. ALLOPURINOL [Suspect]
     Indication: GOUT
     Dosage: 300 MG/1 PILL ONCE DAILY TAKEN BY MOUTH
     Route: 048
     Dates: start: 20140303, end: 20140328

REACTIONS (12)
  - Chills [None]
  - Abdominal pain [None]
  - Pyrexia [None]
  - Kidney infection [None]
  - Decreased appetite [None]
  - Fatigue [None]
  - Rash pruritic [None]
  - Confusional state [None]
  - Asthenia [None]
  - Renal disorder [None]
  - Stevens-Johnson syndrome [None]
  - Ischaemic hepatitis [None]
